FAERS Safety Report 7940331 (Version 3)
Quarter: 2013Q1

REPORT INFORMATION
  Report Type: Spontaneous
  Country: US (occurrence: US)
  Receive Date: 20110511
  Receipt Date: 20130314
  Transmission Date: 20140127
  Serious: Yes (Other)
  Sender: FDA-Public Use
  Company Number: US-ASTRAZENECA-2011SE26273

PATIENT
  Age: 642 Month
  Sex: Female

DRUGS (2)
  1. ARIMIDEX [Suspect]
     Route: 048
  2. CRESTOR [Suspect]
     Route: 048

REACTIONS (10)
  - Road traffic accident [Unknown]
  - Spinal cord injury [Unknown]
  - Spinal cord oedema [Unknown]
  - Spinal fracture [Unknown]
  - Rib fracture [Unknown]
  - Cervical vertebral fracture [Unknown]
  - Thoracic vertebral fracture [Unknown]
  - Forearm fracture [Unknown]
  - Pain [Unknown]
  - Spinal column stenosis [Unknown]
